FAERS Safety Report 11447598 (Version 1)
Quarter: 2015Q3

REPORT INFORMATION
  Report Type: Spontaneous
  Country: US (occurrence: US)
  Receive Date: 20150831
  Receipt Date: 20150831
  Transmission Date: 20151125
  Serious: No
  Sender: FDA-Public Use
  Company Number: US-ELI_LILLY_AND_COMPANY-US200903007770

PATIENT
  Age: 43 Year
  Sex: Female

DRUGS (9)
  1. ZOLOFT [Concomitant]
     Active Substance: SERTRALINE HYDROCHLORIDE
  2. CYMBALTA [Suspect]
     Active Substance: DULOXETINE HYDROCHLORIDE
     Indication: MULTIPLE SCLEROSIS
     Dosage: 60 MG, UNK
  3. NADOLOL. [Concomitant]
     Active Substance: NADOLOL
  4. TRILEPTAL [Concomitant]
     Active Substance: OXCARBAZEPINE
  5. LEVOTHYROXINE. [Concomitant]
     Active Substance: LEVOTHYROXINE
  6. DETROL LA [Concomitant]
     Active Substance: TOLTERODINE TARTRATE
  7. REBIF /05982701/ [Concomitant]
  8. CLONAZEPAM. [Concomitant]
     Active Substance: CLONAZEPAM
  9. AMILORIDE HCL/HCTZ [Concomitant]

REACTIONS (3)
  - Dry mouth [Unknown]
  - Constipation [Unknown]
  - Neck pain [Recovered/Resolved]

NARRATIVE: CASE EVENT DATE: 20090326
